FAERS Safety Report 19469007 (Version 2)
Quarter: 2021Q3

REPORT INFORMATION
  Report Type: Report from Study
  Country: DE (occurrence: DE)
  Receive Date: 20210628
  Receipt Date: 20210809
  Transmission Date: 20211014
  Serious: Yes (Death, Congenital Anomaly, Other)
  Sender: FDA-Public Use
  Company Number: DE-BAYER-2021-163160

PATIENT
  Age: 1 Day
  Sex: Female

DRUGS (3)
  1. NAPROXEN. [Suspect]
     Active Substance: NAPROXEN
     Dosage: 1000 MG, QD IN 0?4 GW
     Route: 064
  2. METAMIZOLE [Suspect]
     Active Substance: METAMIZOLE
     Indication: FOETAL EXPOSURE TIMING UNSPECIFIED
  3. IVABRADINE [Suspect]
     Active Substance: IVABRADINE
     Indication: FOETAL EXPOSURE TIMING UNSPECIFIED

REACTIONS (3)
  - Tracheal atresia [Fatal]
  - Foetal exposure during pregnancy [None]
  - Macrocephaly [None]
